FAERS Safety Report 6265138-5 (Version None)
Quarter: 2009Q3

REPORT INFORMATION
  Report Type: 
  Country: None (occurrence: None)
  Receive Date: 20090708
  Receipt Date: 20090623
  Transmission Date: 20100115
  Serious: Yes (Hospitalization)
  Sender: FDA-Public Use
  Company Number: 1000007258

PATIENT
  Age: 84 Year
  Sex: Female

DRUGS (5)
  1. ESCITALOPRAM [Suspect]
     Indication: DEPRESSION
     Dosage: 20 MG (20 MG, 1 IN 1 D), ORAL
     Route: 048
  2. TOPALGIC [Suspect]
     Dosage: 200 MG (100 MG, 2 IN 1 D)
     Dates: start: 20090127, end: 20090128
  3. PREVISCAN [Concomitant]
  4. PARACETAMOL [Concomitant]
  5. PROZAC [Concomitant]

REACTIONS (4)
  - AGITATION [None]
  - DISORIENTATION [None]
  - HALLUCINATION, AUDITORY [None]
  - HALLUCINATION, VISUAL [None]
